FAERS Safety Report 16005755 (Version 1)
Quarter: 2019Q1

REPORT INFORMATION
  Report Type: Spontaneous
  Country: US (occurrence: US)
  Receive Date: 20190130
  Receipt Date: 20190130
  Transmission Date: 20190418
  Serious: No
  Sender: FDA-Public Use
  Company Number: None

PATIENT
  Age: 56 Year
  Sex: Female
  Weight: 91.63 kg

DRUGS (16)
  1. TRULICITY [Suspect]
     Active Substance: DULAGLUTIDE
     Indication: DIABETES MELLITUS
     Dosage: ?          QUANTITY:0.75 MG MILLIGRAM(S);?
     Route: 058
     Dates: start: 20181123, end: 20181123
  2. METFORMIN [Concomitant]
     Active Substance: METFORMIN HYDROCHLORIDE
  3. LIDOCAINE HCI [Concomitant]
  4. FREESTYLE LITE STRIPS [Concomitant]
  5. VITAMIN B COMPLEX [Concomitant]
     Active Substance: CYANOCOBALAMIN\DEXPANTHENOL\NIACINAMIDE\PYRIDOXINE HYDROCHLORIDE\RIBOFLAVIN 5^-PHOSPHATE SODIUM\THIAMINE HYDROCHLORIDE\VITAMIN B COMPLEX
  6. GLUCOSE BLOOD STRIP [Concomitant]
  7. OLANZAPINE. [Concomitant]
     Active Substance: OLANZAPINE
  8. ONDANSETRON ODT [Concomitant]
     Active Substance: ONDANSETRON
  9. VITAMIN E [Concomitant]
     Active Substance: .ALPHA.-TOCOPHEROL
  10. AMLODIPINE [Concomitant]
     Active Substance: AMLODIPINE BESYLATE
  11. LANCETS [Concomitant]
     Active Substance: DEVICE
  12. VALACYCLOVIR [Concomitant]
     Active Substance: VALACYCLOVIR HYDROCHLORIDE
  13. RANITIDINE. [Concomitant]
     Active Substance: RANITIDINE
  14. CHOLECALCIFEROL (VITAMIN D3) [Concomitant]
  15. COLLAGEN PLUS VITAMIN C [Concomitant]
  16. HUMULIN 70/30 U-100 INSULIN [Concomitant]

REACTIONS (2)
  - Abdominal distension [None]
  - Malaise [None]

NARRATIVE: CASE EVENT DATE: 20181123
